FAERS Safety Report 4380000-0 (Version None)
Quarter: 2004Q2

REPORT INFORMATION
  Report Type: 
  Country: None (occurrence: None)
  Receive Date: 20040614
  Receipt Date: 20040528
  Transmission Date: 20050107
  Serious: Yes (Disabling)
  Sender: FDA-Public Use
  Company Number: 2004-06763

PATIENT
  Age: 40 Year
  Sex: Female
  Weight: 59 kg

DRUGS (4)
  1. VIREAD [Suspect]
     Indication: HIV INFECTION
     Dosage: 300 MG, 1 IN 1 D, ORAL
     Route: 048
     Dates: start: 20040112
  2. LAMIVUDINE (LAMIVUDINE) [Suspect]
     Indication: HEPATITIS
     Dosage: 300 MG, 1 IN 1 D, ORAL
     Route: 048
     Dates: start: 20040112
  3. ATAZANAVIR (ATAZANAVIR) [Concomitant]
  4. RITONAVIR (RITONAVIR) [Concomitant]

REACTIONS (2)
  - HEPATITIS B [None]
  - IMMUNE RECONSTITUTION SYNDROME [None]
